FAERS Safety Report 5036448-4 (Version None)
Quarter: 2006Q2

REPORT INFORMATION
  Report Type: 
  Country: None (occurrence: None)
  Receive Date: 20060623
  Receipt Date: 20060615
  Transmission Date: 20061013
  Serious: Yes (Death)
  Sender: FDA-Public Use
  Company Number: HQWYE671022NOV05

PATIENT
  Age: 20 Year
  Sex: Male

DRUGS (4)
  1. EFFEXOR XR [Suspect]
     Indication: DEPRESSION
     Dosage: SEE IMAGE
     Route: 048
     Dates: start: 20040701, end: 20050102
  2. EFFEXOR XR [Suspect]
     Indication: DEPRESSION
     Dosage: SEE IMAGE
     Route: 048
     Dates: start: 20050103, end: 20050103
  3. EFFEXOR XR [Suspect]
     Indication: DEPRESSION
     Dosage: SEE IMAGE
     Route: 048
     Dates: start: 20050104, end: 20050108
  4. CLONAZEPAM [Concomitant]

REACTIONS (19)
  - ABDOMINAL INJURY [None]
  - CHEST INJURY [None]
  - COMPLETED SUICIDE [None]
  - DIZZINESS [None]
  - DRUG DEPENDENCE [None]
  - DRUG WITHDRAWAL SYNDROME [None]
  - FALL [None]
  - FEELING ABNORMAL [None]
  - FORMICATION [None]
  - HEAD INJURY [None]
  - INCORRECT DOSE ADMINISTERED [None]
  - NAUSEA [None]
  - NERVOUSNESS [None]
  - NIGHTMARE [None]
  - PAIN [None]
  - POLYTRAUMATISM [None]
  - PSYCHOTIC DISORDER [None]
  - SUICIDAL IDEATION [None]
  - TOOTHACHE [None]
